FAERS Safety Report 9527437 (Version 1)
Quarter: 2013Q3

REPORT INFORMATION
  Report Type: Spontaneous
  Country: HU (occurrence: HU)
  Receive Date: 20130917
  Receipt Date: 20130917
  Transmission Date: 20140515
  Serious: Yes (Hospitalization)
  Sender: FDA-Public Use
  Company Number: HU-ROCHE-1276173

PATIENT
  Age: 75 Year
  Sex: Male

DRUGS (2)
  1. MABTHERA [Suspect]
     Indication: RHEUMATOID ARTHRITIS
     Route: 042
     Dates: start: 20120928
  2. MABTHERA [Suspect]
     Route: 042
     Dates: start: 20130509

REACTIONS (2)
  - Polyneuropathy [Recovering/Resolving]
  - Spinal cord disorder [Recovering/Resolving]
